FAERS Safety Report 9832302 (Version 4)
Quarter: 2014Q1

REPORT INFORMATION
  Report Type: Spontaneous
  Country: CH (occurrence: CH)
  Receive Date: 20140121
  Receipt Date: 20140321
  Transmission Date: 20141002
  Serious: Yes (Death, Hospitalization, Other)
  Sender: FDA-Public Use
  Company Number: CH-NOVOPROD-396074

PATIENT
  Age: 65 Year
  Sex: Male
  Weight: 90 kg

DRUGS (9)
  1. VICTOZA [Suspect]
     Indication: TYPE 2 DIABETES MELLITUS
     Dosage: 1.8 MG, QD
     Route: 058
     Dates: end: 201312
  2. TRESIBA [Suspect]
     Indication: TYPE 2 DIABETES MELLITUS
     Dosage: 80 U, QD
     Route: 058
  3. NOVORAPID [Suspect]
     Indication: TYPE 2 DIABETES MELLITUS
     Dosage: UNK
     Route: 058
  4. VALSARTAN [Concomitant]
     Indication: HYPERTENSION
     Dosage: 0.5 TAB, QD (320MG/25MG)
     Route: 065
  5. ACTOS [Concomitant]
     Indication: TYPE 2 DIABETES MELLITUS
     Dosage: 30 MG, QD
     Route: 065
  6. PANTOZOL                           /01263204/ [Concomitant]
     Indication: OESOPHAGITIS
     Dosage: 40 MG, BID
     Route: 065
  7. PANTOZOL                           /01263204/ [Concomitant]
     Indication: GASTRITIS
  8. THIOCTACID                         /00213801/ [Concomitant]
     Indication: DIABETIC NEUROPATHY
     Dosage: 600 MG, QD
     Route: 065
  9. HUMALOG [Concomitant]
     Indication: TYPE 2 DIABETES MELLITUS
     Dosage: UNK (ACCORDING TO OUTLINE)
     Route: 065

REACTIONS (3)
  - Acute coronary syndrome [Fatal]
  - Pancreatic carcinoma metastatic [Unknown]
  - Hyperglycaemia [Unknown]
